FAERS Safety Report 25753001 (Version 2)
Quarter: 2025Q4

REPORT INFORMATION
  Report Type: Spontaneous
  Country: JP (occurrence: JP)
  Receive Date: 20250902
  Receipt Date: 20251120
  Transmission Date: 20260118
  Serious: Yes (Other)
  Sender: BRISTOL-MYERS SQUIBB COMPANY
  Company Number: JP-ONO-2025JP014782

PATIENT
  Age: 80 Year
  Sex: Female

DRUGS (3)
  1. OPDIVO [Suspect]
     Active Substance: NIVOLUMAB
     Indication: Oesophageal carcinoma
     Route: 041
  2. GIMERACIL\OTERACIL\TEGAFUR [Concomitant]
     Active Substance: GIMERACIL\OTERACIL POTASSIUM\TEGAFUR
     Indication: Oesophageal carcinoma
  3. OXALIPLATIN [Concomitant]
     Active Substance: OXALIPLATIN
     Indication: Oesophageal carcinoma

REACTIONS (1)
  - Immune-mediated enterocolitis [Recovering/Resolving]
